FAERS Safety Report 10973761 (Version 1)
Quarter: 2015Q2

REPORT INFORMATION
  Report Type: Spontaneous
  Country: FR (occurrence: FR)
  Receive Date: 20150401
  Receipt Date: 20150401
  Transmission Date: 20150821
  Serious: Yes (Hospitalization)
  Sender: FDA-Public Use
  Company Number: PHHY2015FR036746

PATIENT
  Age: 43 Year
  Sex: Male

DRUGS (12)
  1. URBANYL [Concomitant]
     Active Substance: CLOBAZAM
     Indication: PRODUCT USED FOR UNKNOWN INDICATION
     Route: 065
  2. LOXAPAC [Concomitant]
     Active Substance: LOXAPINE SUCCINATE
     Indication: PRODUCT USED FOR UNKNOWN INDICATION
     Dosage: UNK, PRN
     Route: 065
  3. MOVICOL [Concomitant]
     Active Substance: POLYETHYLENE GLYCOL 3350\POTASSIUM CHLORIDE\SODIUM BICARBONATE\SODIUM CHLORIDE
     Indication: PRODUCT USED FOR UNKNOWN INDICATION
     Dosage: UNK, PRN
     Route: 065
  4. LEVOTHYROX [Suspect]
     Active Substance: LEVOTHYROXINE
     Indication: PRODUCT USED FOR UNKNOWN INDICATION
     Dosage: 1 DF (75 UG), QD (FOR SEVERAL YEARS)
     Route: 048
  5. SALVACYL LP [Suspect]
     Active Substance: TRIPTORELIN
     Indication: PRODUCT USED FOR UNKNOWN INDICATION
     Dosage: 11.25 MG, (1 DF IN 12 WEEKS)
     Route: 030
     Dates: start: 20121101
  6. VALIUM [Concomitant]
     Active Substance: DIAZEPAM
     Indication: PRODUCT USED FOR UNKNOWN INDICATION
     Route: 065
  7. TERCIAN [Concomitant]
     Active Substance: CYAMEMAZINE
     Indication: PRODUCT USED FOR UNKNOWN INDICATION
     Route: 065
  8. DAFALGAN [Concomitant]
     Active Substance: ACETAMINOPHEN
     Indication: PRODUCT USED FOR UNKNOWN INDICATION
     Dosage: UNK, PRN
     Route: 065
  9. PANTOPRAZOLE [Concomitant]
     Active Substance: PANTOPRAZOLE SODIUM
     Indication: PRODUCT USED FOR UNKNOWN INDICATION
     Route: 065
     Dates: start: 20141217
  10. TEGRETOL [Suspect]
     Active Substance: CARBAMAZEPINE
     Indication: PRODUCT USED FOR UNKNOWN INDICATION
     Dosage: 500 MG, BID (FROM SEVERAL YEARS)
     Route: 048
  11. DEPAKINE CHRONO [Suspect]
     Active Substance: VALPROATE SODIUM
     Indication: PRODUCT USED FOR UNKNOWN INDICATION
     Dosage: 1 G (500 MG), BID (FOR SEVERAL YEARS)
     Route: 048
  12. CALCIDOSE VITAMINE D3 [Concomitant]
     Active Substance: CALCIUM\CHOLECALCIFEROL
     Indication: PRODUCT USED FOR UNKNOWN INDICATION
     Route: 065
     Dates: start: 201402

REACTIONS (2)
  - Osteoporotic fracture [Recovered/Resolved with Sequelae]
  - Osteoporosis [Not Recovered/Not Resolved]

NARRATIVE: CASE EVENT DATE: 20141215
